FAERS Safety Report 14351843 (Version 1)
Quarter: 2018Q1

REPORT INFORMATION
  Report Type: Spontaneous
  Country: CN (occurrence: CN)
  Receive Date: 20180104
  Receipt Date: 20180104
  Transmission Date: 20180509
  Serious: Yes (Hospitalization)
  Sender: FDA-Public Use
  Company Number: CN-BAYER-2017-251403

PATIENT
  Age: 68 Year
  Sex: Female
  Weight: 50 kg

DRUGS (3)
  1. GLUCUROLACTONE [Concomitant]
     Active Substance: GLUCUROLACTONE
     Indication: LIVER DISORDER
     Dosage: 150 MG, TID
     Route: 048
  2. GLUCOBAY [Suspect]
     Active Substance: ACARBOSE
     Indication: HYPERGLYCAEMIA
     Dosage: 50 MG, TID
     Route: 048
     Dates: start: 20171006, end: 20171113
  3. INSULIN [Concomitant]
     Active Substance: INSULIN NOS

REACTIONS (3)
  - Abdominal distension [Recovering/Resolving]
  - Flatulence [Recovering/Resolving]
  - Transaminases increased [Recovering/Resolving]

NARRATIVE: CASE EVENT DATE: 20171103
